FAERS Safety Report 4361351-2 (Version None)
Quarter: 2004Q2

REPORT INFORMATION
  Report Type: 
  Country: None (occurrence: None)
  Receive Date: 20040521
  Receipt Date: 20040422
  Transmission Date: 20050107
  Serious: Yes (Hospitalization, Other)
  Sender: FDA-Public Use
  Company Number: PHBS2004BE05789

PATIENT
  Age: 64 Year

DRUGS (10)
  1. ZOMETA [Suspect]
     Indication: MULTIPLE MYELOMA
     Route: 065
     Dates: start: 20020830
  2. THALIDOMIDE [Concomitant]
     Dates: start: 20030101
  3. DEXAMETHASONE [Concomitant]
     Dates: start: 20030101
  4. SOLU-MEDROL [Concomitant]
     Route: 065
  5. CORVATARD [Concomitant]
     Route: 065
     Dates: start: 20040430
  6. SELOKEN [Concomitant]
     Route: 065
     Dates: start: 20040430
  7. TEMESTA [Concomitant]
     Route: 065
     Dates: start: 20040430
  8. ZANTAC [Concomitant]
     Route: 065
     Dates: start: 20040430
  9. ZOVIRAX [Concomitant]
     Indication: HERPES ZOSTER
     Route: 065
     Dates: start: 20040430
  10. BEVIPLEX [Concomitant]
     Route: 065
     Dates: start: 20040430

REACTIONS (12)
  - ANAEMIA [None]
  - BONE DISORDER [None]
  - DENTAL NECROSIS [None]
  - FEBRILE NEUTROPENIA [None]
  - FIBROUS DYSPLASIA OF BONE [None]
  - MALIGNANT NEOPLASM PROGRESSION [None]
  - MUCOSAL INFLAMMATION [None]
  - OSTEONECROSIS [None]
  - SPINAL LAMINECTOMY [None]
  - STOMATITIS [None]
  - TOOTH EXTRACTION [None]
  - TOOTH INFECTION [None]
